FAERS Safety Report 9975744 (Version 1)
Quarter: 2014Q1

REPORT INFORMATION
  Report Type: Other
  Country: US (occurrence: US)
  Receive Date: 20140306
  Receipt Date: 20140306
  Transmission Date: 20141002
  Serious: Yes (Death)
  Sender: FDA-Public Use
  Company Number: US-FRI-1000054884

PATIENT
  Age: 55 Year
  Sex: Male

DRUGS (5)
  1. VILAZODONE [Suspect]
  2. ESCITALOPRAM [Suspect]
  3. ALPRAZOLAM [Suspect]
  4. SALICYLATE [Suspect]
  5. DULOXETINE [Suspect]

REACTIONS (3)
  - Completed suicide [Fatal]
  - Overdose [Fatal]
  - Cardio-respiratory arrest [Fatal]
